FAERS Safety Report 5716915-8 (Version None)
Quarter: 2008Q2

REPORT INFORMATION
  Report Type: 
  Country: None (occurrence: None)
  Receive Date: 20080424
  Receipt Date: 20080423
  Transmission Date: 20081010
  Serious: Yes (Death, Hospitalization, Disabling)
  Sender: FDA-Public Use
  Company Number: JP-BOEHRINGER INGELHEIM GMBH, GERMANY-2008-BP-05043NB

PATIENT
  Sex: Female
  Weight: 53 kg

DRUGS (4)
  1. MICARDIS [Suspect]
     Indication: HYPERTENSION
     Route: 048
     Dates: start: 20061215, end: 20070804
  2. SERMION (NICERGOLINE) [Concomitant]
     Route: 048
     Dates: start: 20030131, end: 20070804
  3. ATELEC [Concomitant]
     Indication: HYPERTENSION
     Route: 048
     Dates: start: 20050218, end: 20070804
  4. PANALDINE [Concomitant]
     Route: 048
     Dates: start: 19951101, end: 20070804

REACTIONS (2)
  - CEREBRAL INFARCTION [None]
  - MYOCARDIAL INFARCTION [None]
